FAERS Safety Report 5909297-X (Version None)
Quarter: 2008Q4

REPORT INFORMATION
  Report Type: 
  Country: None (occurrence: None)
  Receive Date: 20081006
  Receipt Date: 20081003
  Transmission Date: 20090506
  Serious: Yes (Death)
  Sender: FDA-Public Use
  Company Number: GR-ABBOTT-08P-066-0479842-00

PATIENT
  Age: 78 Year
  Sex: Female
  Weight: 58 kg

DRUGS (11)
  1. ZEMPLAR [Suspect]
     Indication: HYPERPARATHYROIDISM SECONDARY
     Route: 042
     Dates: end: 20080630
  2. SACCHARATED IRON OXIDE [Concomitant]
     Indication: RENAL FAILURE CHRONIC
     Route: 042
  3. SUPERAMINE [Concomitant]
     Indication: RENAL FAILURE CHRONIC
     Dosage: IN HEMODIALYSIS
     Route: 042
  4. CERNEVIT-12 [Concomitant]
     Indication: RENAL FAILURE CHRONIC
     Dosage: 1X3 IN HEMODIALYSIS
     Route: 042
  5. DARBEPOETIN ALFA [Concomitant]
     Indication: ANAEMIA
     Dosage: 1 IN HEMODIALYSIS
     Route: 042
  6. LEVOTHYROXINE SODIUM [Concomitant]
     Indication: HYPOTHYROIDISM
     Dosage: 1X1
  7. FOLIC ACID [Concomitant]
     Indication: ANAEMIA
     Dosage: 1X1
     Route: 048
  8. GLIMEPIRIDE [Concomitant]
     Indication: DIABETES MELLITUS
     Dosage: 1X1
     Route: 048
  9. SEVELAMER [Concomitant]
     Indication: BLOOD PHOSPHORUS ABNORMAL
     Dosage: 1X3
     Route: 048
  10. IRBESARTAN [Concomitant]
     Indication: HYPERTENSION
     Route: 048
  11. INTELLECTA [Concomitant]
     Indication: RENAL FAILURE CHRONIC
     Route: 048

REACTIONS (1)
  - CARDIO-RESPIRATORY ARREST [None]
